FAERS Safety Report 5193716-3 (Version None)
Quarter: 2006Q4

REPORT INFORMATION
  Report Type: 
  Country: None (occurrence: None)
  Receive Date: 20061228
  Receipt Date: 20051031
  Transmission Date: 20070319
  Serious: Yes (Hospitalization)
  Sender: FDA-Public Use
  Company Number: US-GLAXOSMITHKLINE-A0582970A

PATIENT
  Age: 43 Year
  Sex: Female
  Weight: 59.1 kg

DRUGS (9)
  1. TUMS [Suspect]
     Indication: CALCIUM DEFICIENCY
     Route: 048
     Dates: end: 20010828
  2. PREMARIN [Concomitant]
  3. ZOLOFT [Concomitant]
  4. DEPAKOTE [Concomitant]
  5. DARVOCET [Concomitant]
  6. GOODY'S POWDER [Concomitant]
  7. TYLENOL [Concomitant]
  8. PEPCID [Concomitant]
  9. PEPTO BISMOL [Concomitant]

REACTIONS (11)
  - DRUG INEFFECTIVE [None]
  - FRACTURE [None]
  - GAIT DISTURBANCE [None]
  - INJURY [None]
  - JOINT SWELLING [None]
  - OSTEOARTHRITIS [None]
  - OSTEOCHONDROSIS [None]
  - OSTEONECROSIS [None]
  - OSTEOPOROSIS [None]
  - PAIN [None]
  - PATELLOFEMORAL PAIN SYNDROME [None]
